FAERS Safety Report 24243286 (Version 2)
Quarter: 2024Q4

REPORT INFORMATION
  Report Type: Spontaneous
  Country: GR (occurrence: GR)
  Receive Date: 20240823
  Receipt Date: 20241011
  Transmission Date: 20250115
  Serious: Yes (Death, Hospitalization, Other)
  Sender: MYLAN
  Company Number: GR-EMA-DD-20200507-abdul_j-112450

PATIENT
  Age: 5 Year
  Sex: Male

DRUGS (12)
  1. CYCLOSPORINE [Suspect]
     Active Substance: CYCLOSPORINE
     Indication: Prophylaxis against graft versus host disease
     Dosage: UNK
     Route: 065
  2. METHOTREXATE [Suspect]
     Active Substance: METHOTREXATE
     Indication: Prophylaxis against graft versus host disease
     Dosage: ON DAY 1, DAY 3 AND DAY 6, POST-TRANSPLANTATION
     Route: 065
  3. THIOTEPA [Suspect]
     Active Substance: THIOTEPA
     Indication: Bone marrow conditioning regimen
     Dosage: 2 DOSAGES 5 MG/KG DAILY
     Route: 065
  4. THIOTEPA [Suspect]
     Active Substance: THIOTEPA
     Indication: Allogenic stem cell transplantation
  5. THIOTEPA [Suspect]
     Active Substance: THIOTEPA
     Indication: Immunosuppressant drug therapy
  6. FLUDARABINE [Suspect]
     Active Substance: FLUDARABINE PHOSPHATE
     Indication: Bone marrow conditioning regimen
     Dosage: 30 MG/M2, UNK (FOR FIVE CONSECUTIVE DAYS)
     Route: 065
  7. FLUDARABINE [Suspect]
     Active Substance: FLUDARABINE PHOSPHATE
     Indication: Allogenic stem cell transplantation
     Dosage: 30 MG/M2
     Route: 065
  8. PYRIMETHAMINE [Suspect]
     Active Substance: PYRIMETHAMINE
     Indication: Acute respiratory distress syndrome
     Dosage: 2 MG/KG,1 AND 1 MG/KG,1
     Route: 065
  9. CLINDAMYCIN [Suspect]
     Active Substance: CLINDAMYCIN
     Indication: Acute respiratory distress syndrome
     Dosage: 10 MG/KG,4 IN 1 DAY
     Route: 065
  10. BUSULFAN [Suspect]
     Active Substance: BUSULFAN
     Indication: Allogenic stem cell transplantation
     Dosage: FOR FOUR CONSECUTIVE DAYS (1.1 MG/KG,1 )
     Route: 065
  11. BUSULFAN [Suspect]
     Active Substance: BUSULFAN
     Indication: Bone marrow conditioning regimen
     Dosage: 1.1 MG/KG, UNK (FOR FOUR CONSECUTIVE DAYS)
     Route: 065
  12. COTRIMOXAZOLE [Suspect]
     Active Substance: SULFAMETHOXAZOLE\TRIMETHOPRIM
     Indication: Acute respiratory distress syndrome
     Dosage: UNK
     Route: 065

REACTIONS (11)
  - Disseminated toxoplasmosis [Fatal]
  - Acute respiratory distress syndrome [Fatal]
  - Respiratory failure [Fatal]
  - Cerebral toxoplasmosis [Fatal]
  - Therapy non-responder [Fatal]
  - Febrile neutropenia [Recovered/Resolved]
  - Cystitis viral [Unknown]
  - Pyrexia [Unknown]
  - Acute graft versus host disease in skin [Unknown]
  - Mucosal inflammation [Recovered/Resolved]
  - BK virus infection [Unknown]
